FAERS Safety Report 8619076-0 (Version None)
Quarter: 2012Q3

REPORT INFORMATION
  Report Type: 
  Country: None (occurrence: None)
  Receive Date: 20120810
  Receipt Date: 20120801
  Transmission Date: 20120928
  Serious: Yes (Other)
  Sender: FDA-Public Use
  Company Number: AUR-APL-2012-03349

PATIENT
  Age: 54 Year
  Sex: Female
  Weight: 56.6996 kg

DRUGS (3)
  1. OMEPRAZOLE [Concomitant]
  2. LISINOPRIL [Concomitant]
  3. ALENDRONATE SODIUM [Suspect]
     Indication: OSTEOPENIA
     Dosage: 10 MG (70 MG, 1 IN 1 WEEK), ORAL
     Route: 048
     Dates: start: 20020101

REACTIONS (1)
  - BARRETT'S OESOPHAGUS [None]
